FAERS Safety Report 22160443 (Version 1)
Quarter: 2023Q1

REPORT INFORMATION
  Report Type: Report from Study
  Country: CA (occurrence: None)
  Receive Date: 20230331
  Receipt Date: 20230331
  Transmission Date: 20230417
  Serious: Yes (Hospitalization)
  Sender: FDA-Public Use
  Company Number: CA-Eisai Medical Research-EC-2023-135959

PATIENT
  Age: 63 Year
  Sex: Female

DRUGS (3)
  1. LENVIMA [Suspect]
     Active Substance: LENVATINIB
     Indication: Endometrial cancer
     Dosage: DOSE UNKNOWN
     Route: 048
     Dates: start: 20230109, end: 2023
  2. LENVIMA [Suspect]
     Active Substance: LENVATINIB
     Route: 048
     Dates: start: 2023, end: 20230309
  3. LENVIMA [Suspect]
     Active Substance: LENVATINIB
     Route: 048
     Dates: start: 20230310, end: 202303

REACTIONS (7)
  - Infection [Unknown]
  - Limb injury [Not Recovered/Not Resolved]
  - Urinary tract infection [Unknown]
  - Decreased appetite [Unknown]
  - Pyrexia [Unknown]
  - Asthenia [Unknown]
  - General physical health deterioration [Unknown]

NARRATIVE: CASE EVENT DATE: 20230101
